FAERS Safety Report 7698646-0 (Version None)
Quarter: 2011Q3

REPORT INFORMATION
  Report Type: 
  Country: None (occurrence: None)
  Receive Date: 20110818
  Receipt Date: 20110818
  Transmission Date: 20111222
  Serious: Yes (Other)
  Sender: FDA-Public Use
  Company Number: None

PATIENT
  Sex: Male
  Weight: 91.5 kg

DRUGS (13)
  1. EMEND [Suspect]
     Indication: ANTIEMETIC SUPPORTIVE CARE
     Dosage: 150MG NOW PRIOR TO CHEMO IVPB IN 250ML NACL OVER 30 MINUTES
     Route: 042
     Dates: start: 20110815
  2. MAGNESIUM SULFATE [Concomitant]
  3. MANNITOL [Concomitant]
  4. SODIUM CHLORIDE [Concomitant]
  5. ONDANSETRON [Concomitant]
  6. ALPRAZOLAM [Concomitant]
  7. DECADRON [Concomitant]
  8. AMLODIPINE [Concomitant]
  9. IPRATROPIUM BROMIDE AND ALBUTEROL SULFATE [Concomitant]
  10. ALOXI [Concomitant]
  11. CISPLATIN [Concomitant]
  12. FENTANYL [Concomitant]
  13. OXYCODONE HCL [Concomitant]

REACTIONS (1)
  - INFUSION SITE PAIN [None]
